FAERS Safety Report 23419126 (Version 2)
Quarter: 2025Q1

REPORT INFORMATION
  Report Type: Report from Study
  Country: US (occurrence: US)
  Receive Date: 20240118
  Receipt Date: 20250124
  Transmission Date: 20250409
  Serious: Yes (Hospitalization, Other)
  Sender: BRISTOL-MYERS SQUIBB COMPANY
  Company Number: US-BRISTOL-MYERS SQUIBB COMPANY-2024-008845

PATIENT
  Age: 73 Year
  Sex: Female

DRUGS (1)
  1. ELIQUIS [Suspect]
     Active Substance: APIXABAN
     Indication: Product used for unknown indication
     Route: 048

REACTIONS (12)
  - Rib fracture [Unknown]
  - Atrial fibrillation [Unknown]
  - Contusion [Unknown]
  - Rash [Unknown]
  - Rhinorrhoea [Unknown]
  - Myocardial infarction [Unknown]
  - Palpitations [Unknown]
  - Anxiety [Unknown]
  - Fall [Unknown]
  - Limb injury [Unknown]
  - Spider vein [Unknown]
  - Inability to afford medication [Unknown]

NARRATIVE: CASE EVENT DATE: 20241101
